FAERS Safety Report 8037334-8 (Version None)
Quarter: 2012Q1

REPORT INFORMATION
  Report Type: 
  Country: None (occurrence: None)
  Receive Date: 20120111
  Receipt Date: 20120102
  Transmission Date: 20120608
  Serious: Yes (Hospitalization)
  Sender: FDA-Public Use
  Company Number: FR-ASTRAZENECA-2012SE01301

PATIENT
  Age: 67 Year
  Sex: Male

DRUGS (5)
  1. DIPRIVAN [Suspect]
     Indication: ANAESTHESIA
     Route: 042
     Dates: start: 20101101
  2. SEVOFLURANE [Suspect]
     Indication: ANAESTHESIA
     Route: 065
     Dates: start: 20101101
  3. ULTIVA [Suspect]
     Indication: ANAESTHESIA
     Route: 065
     Dates: start: 20101101
  4. KETOPROFEN [Suspect]
     Indication: ANAESTHESIA
     Route: 065
     Dates: start: 20101101
  5. ACUPAN [Suspect]
     Indication: ANAESTHESIA
     Route: 065
     Dates: start: 20101101

REACTIONS (3)
  - PYREXIA [None]
  - CYTOLYTIC HEPATITIS [None]
  - JAUNDICE CHOLESTATIC [None]
